FAERS Safety Report 13429849 (Version 1)
Quarter: 2017Q2

REPORT INFORMATION
  Report Type: Spontaneous
  Country: US (occurrence: US)
  Receive Date: 20170412
  Receipt Date: 20170412
  Transmission Date: 20170830
  Serious: No
  Sender: FDA-Public Use
  Company Number: US-BIOGEN-2017BI00384577

PATIENT
  Sex: Female

DRUGS (2)
  1. PLEGRIDY [Suspect]
     Active Substance: PEGINTERFERON BETA-1A
     Indication: MULTIPLE SCLEROSIS
     Route: 065
  2. AVONEX [Suspect]
     Active Substance: INTERFERON BETA-1A
     Indication: MULTIPLE SCLEROSIS
     Route: 065

REACTIONS (5)
  - Secondary progressive multiple sclerosis [Not Recovered/Not Resolved]
  - Skin hypertrophy [Not Recovered/Not Resolved]
  - Drug effect incomplete [Not Recovered/Not Resolved]
  - Needle fatigue [Not Recovered/Not Resolved]
  - Injection site bruising [Not Recovered/Not Resolved]
